FAERS Safety Report 6453945-5 (Version None)
Quarter: 2009Q4

REPORT INFORMATION
  Report Type: 
  Country: None (occurrence: None)
  Receive Date: 20091124
  Receipt Date: 20091112
  Transmission Date: 20100525
  Serious: Yes (Hospitalization)
  Sender: FDA-Public Use
  Company Number: GB-PFIZER INC-2009266136

PATIENT
  Age: 54 Year
  Sex: Female

DRUGS (8)
  1. CHAMPIX [Suspect]
     Dosage: 1 MG, 2X/DAY
     Route: 048
  2. LANSOPRAZOLE [Concomitant]
     Dosage: 30 MG, UNK
  3. AMITRIPTYLINE [Concomitant]
     Dosage: 10 MG, UNK
     Route: 048
  4. PROPRANOLOL [Concomitant]
     Dosage: 10 MG, UNK
  5. CO-CODAMOL [Concomitant]
     Dosage: 30MG/500MG, UNK
  6. TRAMADOL [Concomitant]
     Dosage: 50 MG, UNK
  7. TRAMADOL [Concomitant]
     Dosage: 200 MG, UNK
  8. ESTRADIOL [Concomitant]
     Dosage: 1 MG, UNK
     Route: 048

REACTIONS (1)
  - SURGERY [None]
